FAERS Safety Report 12620378 (Version 1)
Quarter: 2016Q3

REPORT INFORMATION
  Report Type: Spontaneous
  Country: US (occurrence: US)
  Receive Date: 20160803
  Receipt Date: 20160803
  Transmission Date: 20161109
  Serious: No
  Sender: FDA-Public Use
  Company Number: US-ASTRAZENECA-2016SE74022

PATIENT
  Sex: Female
  Weight: 81.6 kg

DRUGS (4)
  1. CLARINEX [Concomitant]
     Active Substance: DESLORATADINE
     Indication: HYPERSENSITIVITY
     Route: 048
  2. VITAMIN B [Concomitant]
     Active Substance: VITAMIN B
     Route: 030
  3. RHINOCORT AQUA [Suspect]
     Active Substance: BUDESONIDE
     Indication: ASTHMA
     Dosage: 32MCG, NASAL SPRAY TWO SPRAYS EACH NOSTRIL DAILY
     Route: 045
  4. RHINOCORT AQUA [Suspect]
     Active Substance: BUDESONIDE
     Indication: SEASONAL ALLERGY
     Dosage: 32MCG, NASAL SPRAY TWO SPRAYS EACH NOSTRIL DAILY
     Route: 045

REACTIONS (5)
  - Nasal congestion [Unknown]
  - Off label use [Unknown]
  - Cough [Unknown]
  - Drug dose omission [Unknown]
  - Product use issue [Unknown]
